FAERS Safety Report 4390799-5 (Version None)
Quarter: 2004Q3

REPORT INFORMATION
  Report Type: 
  Country: None (occurrence: None)
  Receive Date: 20040707
  Receipt Date: 20040420
  Transmission Date: 20050211
  Serious: No
  Sender: FDA-Public Use
  Company Number: US-BRISTOL-MYERS SQUIBB COMPANY-12566451

PATIENT
  Age: 50 Year
  Sex: Female
  Weight: 63 kg

DRUGS (2)
  1. PROLIXIN DECANOATE [Suspect]
     Route: 030
     Dates: end: 20040201
  2. COGENTIN [Concomitant]

REACTIONS (2)
  - ANOREXIA [None]
  - INSOMNIA [None]
